FAERS Safety Report 8313860-9 (Version None)
Quarter: 2012Q2

REPORT INFORMATION
  Report Type: 
  Country: None (occurrence: None)
  Receive Date: 20120426
  Receipt Date: 20120417
  Transmission Date: 20120825
  Serious: Yes (Hospitalization)
  Sender: FDA-Public Use
  Company Number: US-BAYER-2011-123563

PATIENT
  Age: 26 Year
  Sex: Female

DRUGS (7)
  1. IBUPROFEN [Concomitant]
  2. YAZ [Suspect]
     Dosage: UNK
     Dates: end: 20070901
  3. OXYCODONE HCL AND ACETAMINOPHEN [Concomitant]
  4. PROMETHEGAN [Concomitant]
     Dosage: UNK
     Route: 054
     Dates: start: 20070615
  5. YASMIN [Suspect]
     Dosage: UNK
     Dates: end: 20070901
  6. HYDROCODONE BITARTRATE AND ACETAMINOPHEN [Concomitant]
     Dosage: UNK
     Route: 048
     Dates: start: 20070615
  7. DROSPIRENONE AND ETHINYL ESTRADIOL [Suspect]
     Dosage: UNK
     Dates: end: 20070901

REACTIONS (6)
  - INJURY [None]
  - GENERAL PHYSICAL HEALTH DETERIORATION [None]
  - PAIN [None]
  - ANXIETY [None]
  - PULMONARY EMBOLISM [None]
  - EMOTIONAL DISTRESS [None]
